FAERS Safety Report 6575942-1 (Version None)
Quarter: 2010Q1

REPORT INFORMATION
  Report Type: 
  Country: None (occurrence: None)
  Receive Date: 20100209
  Receipt Date: 20100127
  Transmission Date: 20100710
  Serious: Yes (Other)
  Sender: FDA-Public Use
  Company Number: NL-ELI_LILLY_AND_COMPANY-NL200911001930

PATIENT
  Sex: Female

DRUGS (5)
  1. FORTEO [Suspect]
     Indication: FRACTURE
     Dosage: UNK, UNK
     Dates: start: 20090903, end: 20091103
  2. AUROMYOSE [Concomitant]
     Dosage: 50 MG, OTHER
     Route: 030
  3. MARCUMAR [Concomitant]
  4. EMCOR [Concomitant]
  5. CALCI CHEW D3 /00944201/ [Concomitant]

REACTIONS (2)
  - HYPERCALCAEMIA [None]
  - NEOPLASM [None]
